FAERS Safety Report 13288765 (Version 4)
Quarter: 2017Q2

REPORT INFORMATION
  Report Type: Spontaneous
  Country: US (occurrence: US)
  Receive Date: 20170302
  Receipt Date: 20170412
  Transmission Date: 20170830
  Serious: Yes (Hospitalization, Other)
  Sender: FDA-Public Use
  Company Number: US-BAUSCH-BL-2016-030992

PATIENT
  Age: 82 Year
  Sex: Female
  Weight: 68.1 kg

DRUGS (1)
  1. ESOTERICA NIGHTTIME WITH MOISTURIZERS [Suspect]
     Active Substance: HYDROQUINONE
     Indication: PIGMENTATION DISORDER
     Dosage: APPLIED LIGHT LAYER TO FACE ONCE EVERY MORNING AND SOMETIMES AT NIGHT
     Route: 061
     Dates: start: 201612

REACTIONS (4)
  - Drug ineffective [Unknown]
  - Pruritus [Recovered/Resolved]
  - Burning sensation [Recovered/Resolved]
  - Rash macular [Recovered/Resolved]

NARRATIVE: CASE EVENT DATE: 201701
